FAERS Safety Report 6551095-0 (Version None)
Quarter: 2010Q1

REPORT INFORMATION
  Report Type: 
  Country: None (occurrence: None)
  Receive Date: 20100121
  Receipt Date: 20100106
  Transmission Date: 20100710
  Serious: Yes (Hospitalization)
  Sender: FDA-Public Use
  Company Number: 2010000105

PATIENT
  Age: 52 Year
  Sex: Female

DRUGS (13)
  1. ERLOTINIB HYDROCHLORIDE [Suspect]
     Indication: GLIOBLASTOMA
     Dosage: 150 MG, QD, ORAL
     Route: 048
     Dates: start: 20091103, end: 20091207
  2. BEVACIZUMAB (INJECTION FOR INFUSION) [Suspect]
     Indication: GLIOBLASTOMA
     Dosage: 10 MG/KG, Q2W, INTRAVENOUS
     Route: 042
     Dates: start: 20091113, end: 20091208
  3. TEMOZOLOMIDE [Suspect]
     Indication: GLIOBLASTOMA
     Dosage: 75 MG/M2, ORAL
     Route: 048
     Dates: start: 20091103, end: 20091209
  4. KEPPRA [Concomitant]
  5. CELEXA [Concomitant]
  6. PRILOSEC [Concomitant]
  7. BACTRIM [Concomitant]
  8. SENOKOT [Concomitant]
  9. BENADRYL [Concomitant]
  10. AMBIEN [Concomitant]
  11. HYDROCORTONE [Concomitant]
  12. ZOFRAN [Concomitant]
  13. VICODIN [Concomitant]

REACTIONS (6)
  - CONFUSIONAL STATE [None]
  - HERPES SIMPLEX [None]
  - LYMPHOPENIA [None]
  - OESOPHAGEAL INFECTION [None]
  - OPPORTUNISTIC INFECTION [None]
  - PANCYTOPENIA [None]
